FAERS Safety Report 4542381-4 (Version None)
Quarter: 2004Q4

REPORT INFORMATION
  Report Type: 
  Country: None (occurrence: None)
  Receive Date: 20041229
  Receipt Date: 20041217
  Transmission Date: 20050328
  Serious: Yes (Death)
  Sender: FDA-Public Use
  Company Number: 2004S1003728

PATIENT
  Age: 40 Year
  Sex: Male
  Weight: 104.3273 kg

DRUGS (1)
  1. CLONIDINE HCL [Suspect]
     Indication: HYPERTENSION
     Dosage: 0.3 MG BID, ORAL/YEARS
     Route: 048

REACTIONS (4)
  - CORONARY ARTERY DISEASE [None]
  - IMPRISONMENT [None]
  - MEDICATION ERROR [None]
  - MYOCARDIAL INFARCTION [None]
